FAERS Safety Report 15580412 (Version 1)
Quarter: 2018Q4

REPORT INFORMATION
  Report Type: Spontaneous
  Country: US (occurrence: US)
  Receive Date: 20181102
  Receipt Date: 20181102
  Transmission Date: 20190205
  Serious: No
  Sender: FDA-Public Use
  Company Number: US-BAYER-2018-199546

PATIENT
  Age: 63 Year
  Sex: Male

DRUGS (1)
  1. STIVARGA [Suspect]
     Active Substance: REGORAFENIB
     Indication: HEPATIC CANCER
     Dosage: 160 MG DAILY FOR 21 DAYS
     Route: 048
     Dates: start: 20181002, end: 20181023

REACTIONS (4)
  - Dry mouth [Not Recovered/Not Resolved]
  - Decreased appetite [Not Recovered/Not Resolved]
  - Weight decreased [Not Recovered/Not Resolved]
  - Pain in extremity [Not Recovered/Not Resolved]
